FAERS Safety Report 13323001 (Version 10)
Quarter: 2018Q1

REPORT INFORMATION
  Report Type: Report from Study
  Country: FR (occurrence: FR)
  Receive Date: 20170309
  Receipt Date: 20180221
  Transmission Date: 20180508
  Serious: Yes (Other)
  Sender: FDA-Public Use
  Company Number: PHHO2017FR004531

PATIENT
  Age: 49 Year
  Sex: Female

DRUGS (9)
  1. AIN457 [Suspect]
     Active Substance: SECUKINUMAB
     Dosage: 300 MG, CYCLIC
     Route: 058
     Dates: start: 20170116
  2. AIN457 [Suspect]
     Active Substance: SECUKINUMAB
     Dosage: 300 MG, CYCLIC
     Route: 058
     Dates: start: 20161207
  3. AIN457 [Suspect]
     Active Substance: SECUKINUMAB
     Dosage: 300 MG, CYCLIC
     Route: 058
     Dates: start: 20161214
  4. AIN457 [Suspect]
     Active Substance: SECUKINUMAB
     Dosage: 300 MG, CYCLIC
     Route: 058
     Dates: start: 20161221
  5. AIN457 [Suspect]
     Active Substance: SECUKINUMAB
     Indication: PSORIASIS
     Dosage: 300 MG, CYCLIC
     Route: 058
     Dates: start: 20161123
  6. AIN457 [Suspect]
     Active Substance: SECUKINUMAB
     Dosage: 300 MG, CYCLIC
     Route: 058
     Dates: start: 20161130
  7. LEVOTHYROX [Concomitant]
     Active Substance: LEVOTHYROXINE
     Indication: CONGENITAL HYPOTHYROIDISM
     Dosage: 137.5 UG, QD
     Route: 048
     Dates: start: 1969
  8. IMETH [Suspect]
     Active Substance: METHOTREXATE SODIUM
     Indication: PSORIASIS
     Dosage: 2.857 MG, QD (20 MG, ONCE WEEKLY)
     Route: 048
     Dates: start: 20130831
  9. SPECIAFOLDINE [Concomitant]
     Active Substance: FOLIC ACID
     Indication: VITAMIN SUPPLEMENTATION
     Dosage: 0.714 MG, QD (5 MG QW) (DURATION 3 YEARS)
     Route: 065
     Dates: start: 20130831

REACTIONS (1)
  - Malignant melanoma [Recovered/Resolved]

NARRATIVE: CASE EVENT DATE: 20170215
